FAERS Safety Report 8224045-9 (Version None)
Quarter: 2012Q1

REPORT INFORMATION
  Report Type: 
  Country: None (occurrence: None)
  Receive Date: 20120320
  Receipt Date: 20120320
  Transmission Date: 20120608
  Serious: Yes (Hospitalization)
  Sender: FDA-Public Use
  Company Number: None

PATIENT
  Sex: Male
  Weight: 105 kg

DRUGS (6)
  1. VINCRISTINE SULFATE [Suspect]
     Dosage: 10 MG
  2. METHOTREXATE [Suspect]
     Dosage: 45 MG
  3. MERCAPTOPURINE [Suspect]
     Dosage: 1840 MG
  4. CYTARABINE [Suspect]
     Dosage: 1328 MG
  5. PEG-L-ASPARAGINASE (K-H) [Suspect]
     Dosage: 11050 IU
  6. CYCLOPHOSPHAMIDE [Suspect]
     Dosage: 2210 MG

REACTIONS (13)
  - FEBRILE NEUTROPENIA [None]
  - CONSTIPATION [None]
  - MASS [None]
  - ESCHERICHIA TEST POSITIVE [None]
  - LUNG NEOPLASM [None]
  - PROCTALGIA [None]
  - BONE PAIN [None]
  - FUNGAL INFECTION [None]
  - STAPHYLOCOCCAL BACTERAEMIA [None]
  - MYALGIA [None]
  - TRICUSPID VALVE DISEASE [None]
  - FATIGUE [None]
  - NAUSEA [None]
